FAERS Safety Report 13938570 (Version 1)
Quarter: 2017Q3

REPORT INFORMATION
  Report Type: Spontaneous
  Country: US (occurrence: US)
  Receive Date: 20170905
  Receipt Date: 20170905
  Transmission Date: 20171127
  Serious: Yes (Life-Threatening, Other)
  Sender: FDA-Public Use
  Company Number: None

PATIENT
  Sex: Female
  Weight: 90 kg

DRUGS (7)
  1. PREMARIN [Concomitant]
     Active Substance: ESTROGENS, CONJUGATED
  2. DILANTIN [Concomitant]
     Active Substance: PHENYTOIN
  3. TRIAMTERE-HYDROCHLOROTHIAZIDE [Concomitant]
  4. ATENOLOL. [Concomitant]
     Active Substance: ATENOLOL
  5. GLUCOSAMINE [Concomitant]
     Active Substance: GLUCOSAMINE
  6. VITAMIN D [Concomitant]
     Active Substance: CHOLECALCIFEROL
  7. LOSARTAN. [Suspect]
     Active Substance: LOSARTAN
     Indication: HYPERTENSION
     Route: 048
     Dates: start: 20170801, end: 20170804

REACTIONS (4)
  - Pain [None]
  - Blood pressure inadequately controlled [None]
  - Joint stiffness [None]
  - Musculoskeletal stiffness [None]

NARRATIVE: CASE EVENT DATE: 20170901
